FAERS Safety Report 23461623 (Version 3)
Quarter: 2024Q1

REPORT INFORMATION
  Report Type: Report from Study
  Country: US (occurrence: US)
  Receive Date: 20240131
  Receipt Date: 20240222
  Transmission Date: 20240409
  Serious: Yes (Other)
  Sender: FDA-Public Use
  Company Number: US-ABBVIE-5607361

PATIENT
  Age: 60 Year
  Sex: Male

DRUGS (2)
  1. RINVOQ [Suspect]
     Active Substance: UPADACITINIB
     Indication: Rheumatoid arthritis
     Dosage: LAST ADMINISTRATION DATE: 2017
     Route: 048
     Dates: start: 20170216
  2. RINVOQ [Suspect]
     Active Substance: UPADACITINIB
     Indication: Rheumatoid arthritis
     Route: 048
     Dates: start: 20170601, end: 20211201

REACTIONS (9)
  - Spinal operation [Unknown]
  - Back pain [Unknown]
  - Pain [Recovered/Resolved]
  - Arthralgia [Unknown]
  - Intestinal obstruction [Unknown]
  - Asthenia [Unknown]
  - Spondylitis [Unknown]
  - Musculoskeletal disorder [Unknown]
  - Pain [Unknown]

NARRATIVE: CASE EVENT DATE: 20170601
